FAERS Safety Report 8506195-2 (Version None)
Quarter: 2012Q3

REPORT INFORMATION
  Report Type: 
  Country: None (occurrence: None)
  Receive Date: 20120712
  Receipt Date: 20120625
  Transmission Date: 20120928
  Serious: No
  Sender: FDA-Public Use
  Company Number: US-ASTRAZENECA-2012SE42736

PATIENT
  Age: 65 Year
  Sex: Male
  Weight: 86.2 kg

DRUGS (4)
  1. AMLOD-BENZPRL [Concomitant]
  2. METOPROLOL TARTRATE [Suspect]
     Dosage: GENERIC
     Route: 065
  3. TOPROL-XL [Suspect]
     Indication: BLOOD PRESSURE
     Route: 048
  4. PRAVASTATIN [Concomitant]
     Indication: BLOOD CHOLESTEROL

REACTIONS (2)
  - VISION BLURRED [None]
  - VITREOUS FLOATERS [None]
